FAERS Safety Report 9720833 (Version 1)
Quarter: 2013Q4

REPORT INFORMATION
  Report Type: Spontaneous
  Country: MX (occurrence: MX)
  Receive Date: 20131129
  Receipt Date: 20131129
  Transmission Date: 20140711
  Serious: Yes (Death, Other)
  Sender: FDA-Public Use
  Company Number: MX-ROCHE-1310391

PATIENT
  Age: 30 Year
  Sex: 0

DRUGS (7)
  1. AVASTIN [Suspect]
     Indication: BREAST CANCER
     Route: 065
     Dates: start: 20101118
  2. GEMCITABINE [Suspect]
     Indication: BREAST CANCER
     Route: 065
     Dates: start: 20110303
  3. TAXOL [Suspect]
     Indication: BREAST CANCER
     Route: 065
     Dates: start: 20110303
  4. DOCETAXEL [Suspect]
     Indication: BREAST CANCER
     Route: 065
     Dates: start: 20100728, end: 20101028
  5. DOCETAXEL [Suspect]
     Route: 065
     Dates: start: 20101118
  6. CARBOPLATIN [Suspect]
     Indication: BREAST CANCER
     Route: 065
     Dates: start: 20100728, end: 20101028
  7. CARBOPLATIN [Suspect]
     Route: 065
     Dates: start: 20101118

REACTIONS (3)
  - Death [Fatal]
  - Toxicity to various agents [Unknown]
  - Disease progression [Unknown]
